FAERS Safety Report 11008678 (Version 1)
Quarter: 2015Q2

REPORT INFORMATION
  Report Type: Spontaneous
  Country: US (occurrence: None)
  Receive Date: 20150408
  Receipt Date: 20150408
  Transmission Date: 20150821
  Serious: Yes (Other)
  Sender: FDA-Public Use
  Company Number: INT_00729_2015

PATIENT
  Age: 10 Year
  Sex: Female

DRUGS (6)
  1. VINBLASTINE [Suspect]
     Active Substance: VINBLASTINE
     Indication: OVARIAN CANCER STAGE III
     Dosage: [6 CYCLES, EVERY 3-4 WEEKS]
  2. CYCLOPHOSPHAMIDE. [Suspect]
     Active Substance: CYCLOPHOSPHAMIDE
     Indication: OVARIAN CANCER STAGE III
     Dosage: [6 CYCLES, EVERY 3-4 WEEKS]
  3. DOXORUBICIN [Suspect]
     Active Substance: DOXORUBICIN
     Indication: OVARIAN CANCER STAGE III
     Dosage: [6 CYCLES, EVERY 3-4 WEEKS]
  4. CISPLATIN (HQ SPECIALTY) [Suspect]
     Active Substance: CISPLATIN
     Indication: OVARIAN CANCER STAGE III
     Dosage: [6 CYCLES, EVERY 3-4 WEEKS]
  5. BLEOMYCIN [Suspect]
     Active Substance: BLEOMYCIN SULFATE
     Indication: OVARIAN CANCER STAGE III
     Dosage: [6 CYCLES, EVERY 3-4 WEEKS]
  6. ETOPOSIDE. [Suspect]
     Active Substance: ETOPOSIDE
     Indication: OVARIAN CANCER STAGE III
     Dosage: [6 CYCLES, EVERY 3-4 WEEKS]

REACTIONS (4)
  - Decreased appetite [None]
  - Hypomagnesaemia [None]
  - Febrile neutropenia [None]
  - Bone marrow failure [None]
